FAERS Safety Report 6412387-9 (Version None)
Quarter: 2009Q4

REPORT INFORMATION
  Report Type: 
  Country: None (occurrence: None)
  Receive Date: 20091020
  Receipt Date: 20091008
  Transmission Date: 20100525
  Serious: Yes (Other)
  Sender: FDA-Public Use
  Company Number: 8053184

PATIENT
  Age: 13 Year
  Sex: Female

DRUGS (3)
  1. KEPPRA [Suspect]
     Indication: PARTIAL SEIZURES
     Dosage: 1000 MG 2/D PO
     Route: 048
     Dates: end: 20090601
  2. KEPPRA [Suspect]
     Indication: PARTIAL SEIZURES
     Dosage: 1000 MG 2/D PO
     Route: 048
     Dates: start: 20090601
  3. LAMICTAL [Concomitant]

REACTIONS (3)
  - CONDITION AGGRAVATED [None]
  - CONVULSION [None]
  - PRODUCT QUALITY ISSUE [None]
